FAERS Safety Report 24819552 (Version 1)
Quarter: 2025Q1

REPORT INFORMATION
  Report Type: Spontaneous
  Country: US (occurrence: US)
  Receive Date: 20250108
  Receipt Date: 20250108
  Transmission Date: 20250408
  Serious: No
  Sender: PFIZER
  Company Number: US-PFIZER INC-202400197178

PATIENT
  Age: 38 Year
  Sex: Female

DRUGS (2)
  1. LITFULO [Suspect]
     Active Substance: RITLECITINIB TOSYLATE
     Indication: Pruritus
     Route: 048
  2. LITFULO [Suspect]
     Active Substance: RITLECITINIB TOSYLATE
     Indication: Alopecia areata

REACTIONS (1)
  - Drug ineffective [Unknown]
